FAERS Safety Report 6382203-2 (Version None)
Quarter: 2009Q3

REPORT INFORMATION
  Report Type: 
  Country: None (occurrence: None)
  Receive Date: 20090928
  Receipt Date: 20090928
  Transmission Date: 20100115
  Serious: No
  Sender: FDA-Public Use
  Company Number: None

PATIENT
  Age: 56 Year
  Sex: Female
  Weight: 45.3597 kg

DRUGS (1)
  1. CIPRO [Suspect]
     Indication: URINARY TRACT INFECTION
     Dosage: 500 MG 1 TAB 2 X 1 DAY PO
     Route: 048
     Dates: start: 20090904, end: 20090905

REACTIONS (4)
  - ANXIETY [None]
  - HEADACHE [None]
  - POOR QUALITY SLEEP [None]
  - PRURITUS [None]
